FAERS Safety Report 6145914 (Version 2)
Quarter: 2018Q4

REPORT INFORMATION
  Report Type: Report from Study
  Country: GB (occurrence: GB)
  Receive Date: 20061012
  Receipt Date: 20181108
  Transmission Date: 20190205
  Serious: Yes (Death, Hospitalization, Other)
  Sender: FDA-Public Use
  Company Number: GB-SANOFI-SYNTHELABO-A01200608349

PATIENT
  Age: 80 Year
  Sex: Male

DRUGS (10)
  1. EPREX [Suspect]
     Active Substance: ERYTHROPOIETIN
     Indication: ANAEMIA
     Dosage: 2000 IU, QW
     Route: 058
     Dates: start: 20020724, end: 20020802
  2. SIMVASTATIN. [Concomitant]
     Active Substance: SIMVASTATIN
     Indication: HYPERCHOLESTEROLAEMIA
     Dosage: 10 MG,QD
     Route: 048
     Dates: start: 19960502
  3. BISOPROLOL FUMARATE. [Concomitant]
     Active Substance: BISOPROLOL FUMARATE
     Dosage: 5 MG, QD
     Route: 048
  4. EPREX [Suspect]
     Active Substance: ERYTHROPOIETIN
     Dosage: 2000 IU, QW
     Route: 058
     Dates: start: 20011001, end: 20020723
  5. ATENOLOL. [Concomitant]
     Active Substance: ATENOLOL
     Indication: HYPERTENSION
  6. ALFACALCIDOL [Concomitant]
     Active Substance: ALFACALCIDOL
     Indication: HYPERPARATHYROIDISM
     Dosage: 250 MG,QD
     Route: 065
     Dates: start: 20010927
  7. ATENOLOL. [Concomitant]
     Active Substance: ATENOLOL
     Indication: ANGINA PECTORIS
     Dosage: 25 MG,QD
     Route: 048
     Dates: start: 19981101
  8. ATENOLOL. [Concomitant]
     Active Substance: ATENOLOL
     Indication: TACHYCARDIA
  9. CLOPIDOGREL BISULFATE. [Suspect]
     Active Substance: CLOPIDOGREL BISULFATE
     Indication: ANTIPLATELET THERAPY
     Dosage: 75 MG, QD
     Route: 048
     Dates: start: 19990121, end: 20020802
  10. DEFEROXAMINE MESILATE [Concomitant]
     Active Substance: DEFEROXAMINE MESYLATE
     Indication: CHELATION THERAPY
     Dosage: UNK
     Route: 042
     Dates: start: 200404

REACTIONS (25)
  - Blood creatine increased [Recovered/Resolved]
  - Drug ineffective [Unknown]
  - Muscle atrophy [Unknown]
  - Tremor [Unknown]
  - Arthralgia [Unknown]
  - Diarrhoea [Not Recovered/Not Resolved]
  - Vomiting [Unknown]
  - Anti-erythropoietin antibody positive [Unknown]
  - Haemorrhoids [Not Recovered/Not Resolved]
  - Hyperaesthesia [Unknown]
  - Hyperaesthesia [Not Recovered/Not Resolved]
  - Aplasia pure red cell [Not Recovered/Not Resolved]
  - Hiccups [Recovered/Resolved]
  - Blood pressure increased [Recovered/Resolved]
  - Asthenia [Unknown]
  - Dizziness [Not Recovered/Not Resolved]
  - Tendonitis [Not Recovered/Not Resolved]
  - Joint swelling [Recovered/Resolved]
  - Headache [Not Recovered/Not Resolved]
  - Pneumonia [Fatal]
  - Pain in extremity [Unknown]
  - Fatigue [Not Recovered/Not Resolved]
  - Purpura [Unknown]
  - Hypertension [Not Recovered/Not Resolved]
  - Contusion [Not Recovered/Not Resolved]

NARRATIVE: CASE EVENT DATE: 200205
